FAERS Safety Report 19679675 (Version 1)
Quarter: 2021Q3

REPORT INFORMATION
  Report Type: Spontaneous
  Country: US (occurrence: US)
  Receive Date: 20210809
  Receipt Date: 20210809
  Transmission Date: 20211014
  Serious: Yes (Other)
  Sender: FDA-Public Use
  Company Number: US-ACELLA PHARMACEUTICALS, LLC-2114815

PATIENT
  Age: 72 Year
  Sex: Female

DRUGS (1)
  1. NP THYROID [Suspect]
     Active Substance: LEVOTHYROXINE\LIOTHYRONINE
     Indication: HYPOTHYROIDISM
     Route: 048

REACTIONS (5)
  - Thyroid mass [Not Recovered/Not Resolved]
  - Fatigue [Recovered/Resolved]
  - Breast cancer [Recovered/Resolved]
  - Constipation [Recovered/Resolved]
  - Thyroid cyst [Not Recovered/Not Resolved]

NARRATIVE: CASE EVENT DATE: 2020
